FAERS Safety Report 17732419 (Version 1)
Quarter: 2020Q2

REPORT INFORMATION
  Report Type: Report from Study
  Country: KR (occurrence: KR)
  Receive Date: 20200501
  Receipt Date: 20200501
  Transmission Date: 20200714
  Serious: Yes (Death)
  Sender: FDA-Public Use
  Company Number: KR-CELLTRION INC.-2020KR021656

PATIENT

DRUGS (12)
  1. SOLONDO [Concomitant]
     Active Substance: PREDNISOLONE
     Indication: LYMPHOMA
     Dosage: 2 DF, QD
     Route: 048
     Dates: start: 20200211, end: 20200320
  2. TRUXIMA [Suspect]
     Active Substance: RITUXIMAB-ABBS
     Indication: DIFFUSE LARGE B-CELL LYMPHOMA
     Dosage: 573 MG EVERY 3 WEEKS
     Route: 042
     Dates: start: 20191127, end: 20191127
  3. MEGEROL [Concomitant]
     Indication: DECREASED APPETITE
     Dosage: 20ML/P; 1 PACK, QD
     Route: 048
     Dates: start: 20200211, end: 20200416
  4. AMLODIPINE [Concomitant]
     Active Substance: AMLODIPINE BESYLATE
     Indication: HYPERTENSION
     Dosage: 5MG, 1 TAB, QD
     Route: 048
     Dates: start: 20200330, end: 20200416
  5. SODIUM CHLORIDE. [Concomitant]
     Active Substance: SODIUM CHLORIDE
     Dosage: 40MG 20ML/AMP; 1.5 AMP, QD
     Route: 042
     Dates: start: 20200408, end: 20200415
  6. CERNEVIT [Concomitant]
     Active Substance: VITAMINS
     Indication: VITAMIN SUPPLEMENTATION
     Dosage: 1 VIAL, QD
     Route: 042
     Dates: start: 20200407, end: 20200407
  7. SODIUM CHLORIDE. [Concomitant]
     Active Substance: SODIUM CHLORIDE
     Indication: HYPONATRAEMIA
     Dosage: 40MG 20ML/AMP; 1.5 AMP, QD
     Route: 042
     Dates: start: 20200406, end: 20200406
  8. SODIUM CHLORIDE. [Concomitant]
     Active Substance: SODIUM CHLORIDE
     Dosage: 40MG 20ML/AMP; 2 AMP, QD
     Route: 042
     Dates: start: 20200407, end: 20200407
  9. CHOP [Suspect]
     Active Substance: CYCLOPHOSPHAMIDE\DOXORUBICIN\PREDNISONE\VINCRISTINE
     Dosage: UNK
     Dates: start: 20191127
  10. THIAMINE HCL [Concomitant]
     Active Substance: THIAMINE HYDROCHLORIDE
     Indication: VITAMIN SUPPLEMENTATION
     Dosage: 50MG/AMP; 1 AMP, QD
     Route: 042
     Dates: start: 20200407, end: 20200407
  11. SODIUM CHLORIDE. [Concomitant]
     Active Substance: SODIUM CHLORIDE
     Dosage: 40MG/; 2 AMP, QD
     Route: 042
     Dates: start: 20200416, end: 20200416
  12. LEVOTENSION [Concomitant]
     Indication: HYPERTENSION
     Dosage: 5MG, 1 TAB, QD
     Route: 048
     Dates: start: 20200119, end: 20200329

REACTIONS (1)
  - Pneumonia [Fatal]

NARRATIVE: CASE EVENT DATE: 20200317
